FAERS Safety Report 7585864-5 (Version None)
Quarter: 2011Q2

REPORT INFORMATION
  Report Type: 
  Country: None (occurrence: None)
  Receive Date: 20110624
  Receipt Date: 20110621
  Transmission Date: 20111010
  Serious: Yes (Other)
  Sender: FDA-Public Use
  Company Number: A0932143A

PATIENT
  Age: 72 Year
  Sex: Female

DRUGS (1)
  1. UREA PEROXIDE [Suspect]

REACTIONS (3)
  - TINNITUS [None]
  - DEAFNESS [None]
  - EAR DISCOMFORT [None]
